FAERS Safety Report 16287960 (Version 1)
Quarter: 2019Q2

REPORT INFORMATION
  Report Type: Spontaneous
  Country: CA (occurrence: CA)
  Receive Date: 20190508
  Receipt Date: 20190508
  Transmission Date: 20190711
  Serious: Yes (Other)
  Sender: FDA-Public Use
  Company Number: CA-CELGENEUS-CAN-20190501102

PATIENT
  Age: 29 Year
  Sex: Female
  Weight: 58 kg

DRUGS (1)
  1. ABRAXANE [Suspect]
     Active Substance: PACLITAXEL
     Indication: BREAST CANCER
     Dosage: 100 MICROGRAM/SQ. METER
     Route: 041
     Dates: start: 20190227

REACTIONS (1)
  - Pseudocirrhosis [Not Recovered/Not Resolved]

NARRATIVE: CASE EVENT DATE: 20190502
